FAERS Safety Report 8823780 (Version 5)
Quarter: 2013Q1

REPORT INFORMATION
  Report Type: Spontaneous
  Country: JP (occurrence: JP)
  Receive Date: 20121003
  Receipt Date: 20130204
  Transmission Date: 20140127
  Serious: Yes (Death, Life-Threatening, Hospitalization)
  Sender: FDA-Public Use
  Company Number: JP-009507513-1210JPN000365

PATIENT
  Age: 63 Year
  Sex: Male
  Weight: 96 kg

DRUGS (3)
  1. PEGINTRON [Suspect]
     Indication: CHRONIC HEPATITIS C
     Dosage: 120 MICROGRAM, QW
     Route: 058
     Dates: start: 20111107, end: 20120910
  2. REBETOL [Suspect]
     Indication: CHRONIC HEPATITIS C
     Dosage: 200 MG, SEPARATE NO:5 TIMES A DAY
     Route: 048
     Dates: start: 20111107, end: 20120917
  3. WARFARIN POTASSIUM [Concomitant]
     Indication: ATRIAL FIBRILLATION
     Dosage: UNK
     Route: 048
     Dates: start: 201110, end: 20120929

REACTIONS (16)
  - Renal failure [Fatal]
  - Hepatic failure [Fatal]
  - Vasculitis [Not Recovered/Not Resolved]
  - Interstitial lung disease [Recovered/Resolved]
  - Respiratory failure [Fatal]
  - Idiopathic thrombocytopenic purpura [Fatal]
  - Pneumonia [Fatal]
  - Upper gastrointestinal haemorrhage [Fatal]
  - Intra-abdominal haemorrhage [Fatal]
  - Pleural haemorrhage [Fatal]
  - Gastrointestinal obstruction [Not Recovered/Not Resolved]
  - Disseminated intravascular coagulation [Recovered/Resolved]
  - Hypothyroidism [Not Recovered/Not Resolved]
  - Hypopituitarism [Not Recovered/Not Resolved]
  - Splenic infarction [Not Recovered/Not Resolved]
  - Autoimmune disorder [Unknown]
